FAERS Safety Report 24050857 (Version 2)
Quarter: 2024Q3

REPORT INFORMATION
  Report Type: Report from Study
  Country: CO (occurrence: CO)
  Receive Date: 20240704
  Receipt Date: 20240806
  Transmission Date: 20241017
  Serious: Yes (Life-Threatening, Hospitalization)
  Sender: NOVARTIS
  Company Number: CO-002147023-NVSC2024CO097722

PATIENT
  Age: 51 Year
  Sex: Female
  Weight: 96 kg

DRUGS (5)
  1. ELTROMBOPAG OLAMINE [Suspect]
     Active Substance: ELTROMBOPAG OLAMINE
     Indication: Bone marrow failure
     Dosage: 50 MG, QD
     Route: 048
     Dates: start: 20181125
  2. ELTROMBOPAG OLAMINE [Suspect]
     Active Substance: ELTROMBOPAG OLAMINE
     Indication: Immune thrombocytopenia
     Dosage: 3 DOSAGE FORM
     Route: 065
  3. ELTROMBOPAG OLAMINE [Suspect]
     Active Substance: ELTROMBOPAG OLAMINE
     Dosage: 50 MG, QD (THE PHYSICIAN INDICATED HER TO TAKE 3 TABLETS EVERY 24 HOURS/THE PATIENT WAS TAKING ONE T
     Route: 048
  4. CYCLOSPORINE [Suspect]
     Active Substance: CYCLOSPORINE
     Indication: Product used for unknown indication
     Dosage: 100 MG, Q24H, (QD), STARTED 8 YEARS AGO
     Route: 048
  5. ACETAMINOPHEN [Concomitant]
     Active Substance: ACETAMINOPHEN
     Indication: Product used for unknown indication
     Dosage: UNK, QD
     Route: 065

REACTIONS (11)
  - Platelet count decreased [Recovering/Resolving]
  - Allergic transfusion reaction [Recovered/Resolved]
  - Dyspnoea [Recovered/Resolved]
  - Seizure [Recovered/Resolved]
  - Memory impairment [Unknown]
  - Fall [Unknown]
  - Arthralgia [Not Recovered/Not Resolved]
  - Gait disturbance [Unknown]
  - Illness [Not Recovered/Not Resolved]
  - Product use in unapproved indication [Unknown]
  - Incorrect dose administered [Unknown]

NARRATIVE: CASE EVENT DATE: 20240120
